FAERS Safety Report 11280051 (Version 1)
Quarter: 2015Q3

REPORT INFORMATION
  Report Type: Spontaneous
  Country: US (occurrence: US)
  Receive Date: 20150717
  Receipt Date: 20150717
  Transmission Date: 20151125
  Serious: No
  Sender: FDA-Public Use
  Company Number: US-GALDERMA-US15002406

PATIENT
  Sex: Female

DRUGS (1)
  1. SOOLANTRA [Suspect]
     Active Substance: IVERMECTIN
     Dosage: 1%
     Route: 061

REACTIONS (2)
  - Condition aggravated [Unknown]
  - Skin irritation [Unknown]
